FAERS Safety Report 8614099-X (Version None)
Quarter: 2012Q3

REPORT INFORMATION
  Report Type: 
  Country: None (occurrence: None)
  Receive Date: 20120823
  Receipt Date: 20120811
  Transmission Date: 20120928
  Serious: Yes (Hospitalization, Other)
  Sender: FDA-Public Use
  Company Number: US-009507513-1207USA001263

PATIENT

DRUGS (5)
  1. LIPITOR [Concomitant]
  2. RIBASPHERE [Suspect]
  3. VICTRELIS [Suspect]
     Indication: HEPATITIS C
     Dosage: 800 MG, Q8H
     Route: 048
     Dates: start: 20120424
  4. PEG-INTRON [Suspect]
     Indication: HEPATITIS C
     Dosage: 150 MICROGRAM, QW
     Route: 058
     Dates: start: 20120327
  5. FLOMAX [Concomitant]

REACTIONS (1)
  - CARDIAC DISORDER [None]
